FAERS Safety Report 21324601 (Version 1)
Quarter: 2022Q3

REPORT INFORMATION
  Report Type: Spontaneous
  Country: US (occurrence: US)
  Receive Date: 20220912
  Receipt Date: 20220912
  Transmission Date: 20221026
  Serious: No
  Sender: FDA-Public Use
  Company Number: US-TRIS PHARMA, INC.-22US010391

PATIENT

DRUGS (4)
  1. QUILLIVANT XR [Suspect]
     Active Substance: METHYLPHENIDATE HYDROCHLORIDE
     Indication: Attention deficit hyperactivity disorder
     Dosage: 4 MILLILITRE, QD
     Route: 048
     Dates: start: 20210901
  2. QUILLIVANT XR [Suspect]
     Active Substance: METHYLPHENIDATE HYDROCHLORIDE
     Dosage: 5 MILLILITRE, QD
     Route: 048
     Dates: start: 20220330
  3. CLONIDINE [Concomitant]
     Active Substance: CLONIDINE
     Indication: Product used for unknown indication
     Dosage: UNK
  4. CYPROHEPTADINE [Concomitant]
     Active Substance: CYPROHEPTADINE
     Indication: Product used for unknown indication
     Dosage: UNK

REACTIONS (1)
  - Nausea [Not Recovered/Not Resolved]

NARRATIVE: CASE EVENT DATE: 20210901
